FAERS Safety Report 4927888-X (Version None)
Quarter: 2006Q1

REPORT INFORMATION
  Report Type: 
  Country: None (occurrence: None)
  Receive Date: 20060228
  Receipt Date: 20060224
  Transmission Date: 20060701
  Serious: Yes (Hospitalization)
  Sender: FDA-Public Use
  Company Number: DE-GLAXOSMITHKLINE-D0048841A

PATIENT
  Age: 64 Year
  Sex: Female
  Weight: 73.5 kg

DRUGS (5)
  1. ZOFRAN [Suspect]
     Dosage: 5MG PER DAY
     Route: 042
     Dates: start: 20051229
  2. BENDAZOL [Suspect]
     Dosage: 120MG PER DAY
     Route: 042
     Dates: start: 20051229
  3. GEMCITABINE [Suspect]
     Dosage: 1720MG PER DAY
     Route: 042
     Dates: start: 20051229
  4. DEXAMETHASONE [Suspect]
     Dosage: 20MG PER DAY
     Route: 042
     Dates: start: 20051229
  5. FENISTIL [Suspect]
     Dosage: 2MG PER DAY
     Route: 042
     Dates: start: 20051229

REACTIONS (5)
  - COUGH [None]
  - MALAISE [None]
  - PRODUCTIVE COUGH [None]
  - PYREXIA [None]
  - RESPIRATORY TRACT INFECTION [None]
